FAERS Safety Report 22525428 (Version 1)
Quarter: 2023Q2

REPORT INFORMATION
  Report Type: Spontaneous
  Country: US (occurrence: US)
  Receive Date: 20230606
  Receipt Date: 20230606
  Transmission Date: 20230721
  Serious: Yes (Hospitalization, Other)
  Sender: FDA-Public Use
  Company Number: US-SUN PHARMACEUTICAL INDUSTRIES LTD-2023R1-392745

PATIENT
  Age: 7 Decade
  Sex: Male

DRUGS (2)
  1. PREDNISONE [Suspect]
     Active Substance: PREDNISONE
     Indication: Granuloma
     Dosage: 80 MILLIGRAM, DAILY FOR THE FIRST WEEK
     Route: 065
  2. METHYLPREDNISOLONE [Suspect]
     Active Substance: METHYLPREDNISOLONE
     Indication: Granuloma
     Dosage: 500 MILLIGRAM BOLUS DOSE
     Route: 065

REACTIONS (1)
  - Therapeutic response decreased [Unknown]
